FAERS Safety Report 8143157-1 (Version None)
Quarter: 2012Q1

REPORT INFORMATION
  Report Type: 
  Country: None (occurrence: None)
  Receive Date: 20120217
  Receipt Date: 20120213
  Transmission Date: 20120608
  Serious: No
  Sender: FDA-Public Use
  Company Number: US-PFIZER INC-2012002395

PATIENT
  Sex: Male

DRUGS (1)
  1. SUTENT [Suspect]
     Indication: RENAL CELL CARCINOMA
     Dosage: 50 MG, 1X/DAY, 28 DAYS ON THEN 14 DAYS OFF
     Route: 048
     Dates: start: 20090401, end: 20120103

REACTIONS (3)
  - METASTATIC RENAL CELL CARCINOMA [None]
  - CHORIORETINAL DISORDER [None]
  - DISEASE PROGRESSION [None]
